FAERS Safety Report 7910562-5 (Version None)
Quarter: 2011Q4

REPORT INFORMATION
  Report Type: 
  Country: None (occurrence: None)
  Receive Date: 20111111
  Receipt Date: 20111104
  Transmission Date: 20120403
  Serious: Yes (Other)
  Sender: FDA-Public Use
  Company Number: PHHY2011PH098140

PATIENT
  Sex: Male

DRUGS (3)
  1. GLEEVEC [Suspect]
     Dosage: 300 MG, QD
     Dates: start: 20111104
  2. GLEEVEC [Suspect]
     Dosage: 400 MG, DAILY
  3. GLEEVEC [Suspect]
     Indication: CHRONIC MYELOID LEUKAEMIA
     Dosage: 300 MG, QD
     Dates: start: 20031120

REACTIONS (2)
  - RENAL FAILURE CHRONIC [None]
  - BONE MARROW FAILURE [None]
